FAERS Safety Report 18243558 (Version 1)
Quarter: 2020Q3

REPORT INFORMATION
  Report Type: Spontaneous
  Country: US (occurrence: US)
  Receive Date: 20200908
  Receipt Date: 20200908
  Transmission Date: 20201103
  Serious: Yes (Hospitalization, Other)
  Sender: FDA-Public Use
  Company Number: US-BRISTOL-MYERS SQUIBB COMPANY-17356098

PATIENT
  Age: 76 Year
  Sex: Female

DRUGS (4)
  1. WARFARIN SODIUM. [Interacting]
     Active Substance: WARFARIN SODIUM
     Dosage: 15 MILLIGRAM, QD
     Route: 048
  2. WARFARIN SODIUM. [Suspect]
     Active Substance: WARFARIN SODIUM
     Indication: ANTIBIOTIC THERAPY
     Dosage: 5 MILLIGRAM, QD
     Route: 048
  3. DICLOXACILLIN SODIUM. [Interacting]
     Active Substance: DICLOXACILLIN SODIUM
     Indication: ANTIBIOTIC THERAPY
     Dosage: 500 MG, QID
     Route: 048
  4. WARFARIN SODIUM. [Interacting]
     Active Substance: WARFARIN SODIUM
     Dosage: 10 MILLIGRAM, QD
     Route: 048

REACTIONS (3)
  - Prosthetic cardiac valve thrombosis [Unknown]
  - Therapeutic response decreased [Unknown]
  - Drug interaction [Unknown]
